FAERS Safety Report 20628658 (Version 1)
Quarter: 2022Q1

REPORT INFORMATION
  Report Type: Spontaneous
  Country: US (occurrence: US)
  Receive Date: 20220323
  Receipt Date: 20220323
  Transmission Date: 20220423
  Serious: Yes (Disabling)
  Sender: FDA-Public Use
  Company Number: US-BAUSCH-BL-2022-006879

PATIENT

DRUGS (2)
  1. LUMIFY [Suspect]
     Active Substance: BRIMONIDINE TARTRATE
     Indication: Ocular hyperaemia
     Dosage: USING ON AVERAGE TWICE DAILY
     Route: 047
     Dates: start: 2021
  2. LUMIFY [Suspect]
     Active Substance: BRIMONIDINE TARTRATE

REACTIONS (8)
  - Eye injury [Not Recovered/Not Resolved]
  - Instillation site inflammation [Unknown]
  - Lacrimal disorder [Unknown]
  - Instillation site hypersensitivity [Unknown]
  - Photophobia [Unknown]
  - Rash macular [Not Recovered/Not Resolved]
  - Instillation site erythema [Unknown]
  - Condition aggravated [Unknown]
